FAERS Safety Report 20146443 (Version 1)
Quarter: 2021Q4

REPORT INFORMATION
  Report Type: Spontaneous
  Country: US (occurrence: None)
  Receive Date: 20211203
  Receipt Date: 20211203
  Transmission Date: 20220303
  Serious: Yes (Other)
  Sender: FDA-Public Use
  Company Number: None

PATIENT
  Age: 80 Year
  Sex: Male
  Weight: 56.7 kg

DRUGS (9)
  1. TIZANIDINE [Suspect]
     Active Substance: TIZANIDINE
     Indication: Muscle tightness
     Dosage: FREQUENCY : EVERY 6 HOURS;?
     Route: 048
     Dates: start: 20211130, end: 20211130
  2. astragalus [Concomitant]
  3. COENZYME Q10 [Concomitant]
     Active Substance: DIETARY SUPPLEMENT\UBIDECARENONE
  4. EsterC [Concomitant]
  5. FISH OIL [Concomitant]
     Active Substance: FISH OIL
  6. GINGER [Concomitant]
     Active Substance: GINGER
  7. Glucosamine + Chondroitin [Concomitant]
  8. VITAMINS [Concomitant]
     Active Substance: VITAMINS
  9. HERBALS\TURMERIC [Concomitant]
     Active Substance: HERBALS\TURMERIC

REACTIONS (1)
  - Vision blurred [None]

NARRATIVE: CASE EVENT DATE: 20211130
